FAERS Safety Report 19068960 (Version 1)
Quarter: 2021Q1

REPORT INFORMATION
  Report Type: Spontaneous
  Country: US (occurrence: US)
  Receive Date: 20210329
  Receipt Date: 20210329
  Transmission Date: 20210420
  Serious: Yes (Other)
  Sender: FDA-Public Use
  Company Number: US-MYLANLABS-2021M1016484

PATIENT
  Sex: Male
  Weight: 79 kg

DRUGS (3)
  1. IBUPROFEN MYLAN [Suspect]
     Active Substance: IBUPROFEN
     Indication: PENIS DISORDER
  2. IBUPROFEN MYLAN [Suspect]
     Active Substance: IBUPROFEN
     Indication: PELVIC PAIN
     Dosage: 600 MILLIGRAM, TID (3 TIMES A DAY)
     Route: 048
  3. IBUPROFEN MYLAN [Suspect]
     Active Substance: IBUPROFEN
     Indication: PELVIC INFLAMMATORY DISEASE

REACTIONS (1)
  - Haematochezia [Recovered/Resolved]
